FAERS Safety Report 13197834 (Version 1)
Quarter: 2017Q1

REPORT INFORMATION
  Report Type: Spontaneous
  Country: US (occurrence: US)
  Receive Date: 20170208
  Receipt Date: 20170208
  Transmission Date: 20170428
  Serious: No
  Sender: FDA-Public Use
  Company Number: US-AMGEN-USASP2016182788

PATIENT
  Age: 82 Year
  Sex: Female

DRUGS (2)
  1. ZOFRAN [Suspect]
     Active Substance: ONDANSETRON HYDROCHLORIDE
     Indication: NAUSEA
     Dosage: UNK UNK, 48 HOURS AFTER CHEMOAFTER CHEMO
     Route: 065
  2. NEULASTA [Suspect]
     Active Substance: PEGFILGRASTIM
     Indication: PRODUCT USED FOR UNKNOWN INDICATION
     Dosage: UNK
     Route: 065
     Dates: start: 20161222

REACTIONS (12)
  - Feeling abnormal [Unknown]
  - Migraine [Unknown]
  - Bone pain [Unknown]
  - Myalgia [Unknown]
  - Neck pain [Unknown]
  - Back pain [Unknown]
  - Musculoskeletal pain [Unknown]
  - Headache [Unknown]
  - Pain in extremity [Unknown]
  - Chest pain [Unknown]
  - Pain in jaw [Unknown]
  - Pain [Unknown]

NARRATIVE: CASE EVENT DATE: 201612
